FAERS Safety Report 10462358 (Version 1)
Quarter: 2014Q3

REPORT INFORMATION
  Report Type: Report from Study
  Country: LB (occurrence: LB)
  Receive Date: 20140918
  Receipt Date: 20140918
  Transmission Date: 20150326
  Serious: Yes (Hospitalization)
  Sender: FDA-Public Use
  Company Number: LB-SA-2014SA127148

PATIENT
  Age: 66 Year
  Sex: Female

DRUGS (6)
  1. LANTUS SOLOSTAR [Suspect]
     Active Substance: INSULIN GLARGINE
     Indication: DIABETES MELLITUS
     Dosage: DOSE:50 UNIT(S)
     Route: 058
  2. LANTUS SOLOSTAR [Suspect]
     Active Substance: INSULIN GLARGINE
     Indication: DIABETES MELLITUS
     Dosage: DOSE:35 UNIT(S)
     Route: 058
  3. SOLOSTAR [Concomitant]
     Active Substance: DEVICE
     Dates: start: 201304
  4. SOLOSTAR [Concomitant]
     Active Substance: DEVICE
  5. SOLOSTAR [Concomitant]
     Active Substance: DEVICE
  6. LANTUS SOLOSTAR [Suspect]
     Active Substance: INSULIN GLARGINE
     Indication: DIABETES MELLITUS
     Dosage: DOSE:46 UNIT(S)
     Route: 058
     Dates: start: 201304

REACTIONS (3)
  - Vomiting [Recovered/Resolved]
  - Nausea [Recovered/Resolved]
  - Poisoning [Recovered/Resolved]

NARRATIVE: CASE EVENT DATE: 2014
